FAERS Safety Report 6052573-3 (Version None)
Quarter: 2009Q1

REPORT INFORMATION
  Report Type: 
  Country: None (occurrence: None)
  Receive Date: 20090127
  Receipt Date: 20090119
  Transmission Date: 20090719
  Serious: Yes (Other)
  Sender: FDA-Public Use
  Company Number: GB-RANBAXY-2008RR-19558

PATIENT

DRUGS (1)
  1. RANITIDINE [Suspect]
     Indication: DYSPEPSIA
     Dosage: 225 MG, UNK
     Dates: start: 20081101

REACTIONS (3)
  - FORMICATION [None]
  - HALLUCINATION [None]
  - MALAISE [None]
